FAERS Safety Report 9182006 (Version 1)
Quarter: 2012Q4

REPORT INFORMATION
  Report Type: Report from Study
  Country: FR (occurrence: FR)
  Receive Date: 20121030
  Receipt Date: 20121030
  Transmission Date: 20130627
  Serious: Yes (Hospitalization)
  Sender: FDA-Public Use
  Company Number: PHHO2012FR015356

PATIENT
  Age: 72 None
  Sex: Female

DRUGS (4)
  1. NEORAL [Suspect]
     Indication: RENAL TRANSPLANT
     Dosage: 180 mg, QD
     Route: 002
     Dates: start: 20120909
  2. CELLCEPT [Suspect]
     Indication: RENAL TRANSPLANT
     Dosage: 3 g, QD
     Route: 002
     Dates: start: 20120906
  3. CORTANCYL [Suspect]
     Indication: RENAL TRANSPLANT
     Dosage: 17.5 mg, QD
     Route: 002
     Dates: start: 20120912
  4. PREVISCAN [Concomitant]
     Indication: ATRIAL FIBRILLATION

REACTIONS (2)
  - Ulcer haemorrhage [Recovered/Resolved]
  - Overdose [Recovering/Resolving]
